FAERS Safety Report 6495690-6 (Version None)
Quarter: 2009Q4

REPORT INFORMATION
  Report Type: 
  Country: None (occurrence: None)
  Receive Date: 20091214
  Receipt Date: 20090728
  Transmission Date: 20100525
  Serious: No
  Sender: FDA-Public Use
  Company Number: US-BRISTOL-MYERS SQUIBB COMPANY-14724272

PATIENT
  Age: 25 Year
  Sex: Male

DRUGS (2)
  1. ABILIFY [Suspect]
     Dosage: DOSE REDUCED TO 10MG
     Route: 048
  2. DEPAKOTE [Suspect]
     Dosage: DECREASED TO 15MG

REACTIONS (2)
  - FALL [None]
  - HYPOTENSION [None]
